FAERS Safety Report 7747146-8 (Version None)
Quarter: 2011Q3

REPORT INFORMATION
  Report Type: 
  Country: None (occurrence: None)
  Receive Date: 20110913
  Receipt Date: 20110901
  Transmission Date: 20111222
  Serious: Yes (Hospitalization)
  Sender: FDA-Public Use
  Company Number: DE-PFIZER INC-2011188204

PATIENT
  Age: 69 Year
  Sex: Female

DRUGS (5)
  1. VINCRISTINE SULFATE [Suspect]
     Indication: DIFFUSE LARGE B-CELL LYMPHOMA
     Dosage: ON DAYS 1, 15, 29, 43, 57 AND 71
     Dates: start: 20081215
  2. PREDNISOLONE [Suspect]
     Indication: DIFFUSE LARGE B-CELL LYMPHOMA
     Dosage: UNK
     Dates: start: 20081215
  3. DOXORUBICIN HCL [Suspect]
     Indication: DIFFUSE LARGE B-CELL LYMPHOMA
     Dosage: ON DAYS 1, 15, 29, 43, 57 AND 71
     Dates: start: 20081215
  4. CYCLOPHOSPHAMIDE [Suspect]
     Indication: DIFFUSE LARGE B-CELL LYMPHOMA
     Dosage: ON DAYS 1, 15, 29, 43, 57 AND 71
     Dates: start: 20081215
  5. RITUXIMAB [Suspect]
     Indication: DIFFUSE LARGE B-CELL LYMPHOMA
     Dosage: 375 MG/M2, ON DAYS 0, 1, 4, 8, 15, 22, 29, 43, 57, 71, 85, 99
     Dates: start: 20081215

REACTIONS (6)
  - PANCYTOPENIA [None]
  - DEHYDRATION [None]
  - PAIN [None]
  - INFECTION [None]
  - BRONCHITIS [None]
  - MUCOSAL INFLAMMATION [None]
